FAERS Safety Report 14518137 (Version 4)
Quarter: 2018Q3

REPORT INFORMATION
  Report Type: Report from Study
  Country: US (occurrence: US)
  Receive Date: 20180212
  Receipt Date: 20180703
  Transmission Date: 20181010
  Serious: Yes (Life-Threatening, Other)
  Sender: FDA-Public Use
  Company Number: US-JNJFOC-20180202948

PATIENT
  Age: 62 Year
  Sex: Female
  Weight: 97.52 kg

DRUGS (11)
  1. DARZALEX [Suspect]
     Active Substance: DARATUMUMAB
     Indication: PLASMA CELL MYELOMA
     Route: 042
     Dates: start: 201802, end: 2018
  2. DARZALEX [Suspect]
     Active Substance: DARATUMUMAB
     Indication: PLASMA CELL MYELOMA
     Route: 042
     Dates: start: 2018
  3. METHYLPREDNISOLONE. [Concomitant]
     Active Substance: METHYLPREDNISOLONE
     Indication: PREMEDICATION
     Route: 050
  4. DEXAMETHASONE. [Concomitant]
     Active Substance: DEXAMETHASONE
     Indication: PREMEDICATION
  5. TYLENOL [Concomitant]
     Active Substance: ACETAMINOPHEN
     Indication: PREMEDICATION
     Route: 048
     Dates: start: 20180131, end: 20180131
  6. DEXAMETHASONE. [Concomitant]
     Active Substance: DEXAMETHASONE
     Indication: PLASMA CELL MYELOMA
  7. DARZALEX [Suspect]
     Active Substance: DARATUMUMAB
     Indication: PLASMA CELL MYELOMA
     Route: 042
     Dates: start: 20180131
  8. DEXAMETHASONE. [Concomitant]
     Active Substance: DEXAMETHASONE
     Indication: PREMEDICATION
  9. SINGULAIR [Concomitant]
     Active Substance: MONTELUKAST SODIUM
     Indication: PRODUCT USED FOR UNKNOWN INDICATION
  10. POMALYST [Concomitant]
     Active Substance: POMALIDOMIDE
     Indication: PLASMA CELL MYELOMA
     Route: 065
  11. DEXAMETHASONE. [Concomitant]
     Active Substance: DEXAMETHASONE
     Indication: PLASMA CELL MYELOMA

REACTIONS (25)
  - Fluid retention [Unknown]
  - Dyspnoea [Recovered/Resolved]
  - Off label use [Unknown]
  - Product use issue [Unknown]
  - Throat tightness [Recovered/Resolved]
  - Anxiety [Recovered/Resolved]
  - Oral discomfort [Unknown]
  - Back pain [Recovered/Resolved]
  - Vision blurred [Recovered/Resolved]
  - Chills [Recovered/Resolved]
  - Anaphylactic shock [Recovered/Resolved]
  - Infusion related reaction [Recovered/Resolved]
  - Respiratory tract infection [Unknown]
  - Headache [Recovered/Resolved]
  - Drug dose omission [Unknown]
  - Oedema peripheral [Recovered/Resolved]
  - Nausea [Recovered/Resolved]
  - Nasal disorder [Recovered/Resolved]
  - Vitreous floaters [Unknown]
  - Sinus congestion [Recovered/Resolved]
  - Abdominal pain [Recovered/Resolved]
  - Incorrect drug administration rate [Unknown]
  - Sensation of foreign body [Unknown]
  - Pollakiuria [Unknown]
  - Hypoaesthesia [Recovered/Resolved]

NARRATIVE: CASE EVENT DATE: 2018
